FAERS Safety Report 20263830 (Version 1)
Quarter: 2021Q4

REPORT INFORMATION
  Report Type: Spontaneous
  Country: BE (occurrence: BE)
  Receive Date: 20211231
  Receipt Date: 20211231
  Transmission Date: 20220303
  Serious: Yes (Death, Hospitalization)
  Sender: FDA-Public Use
  Company Number: BE-LUPIN PHARMACEUTICALS INC.-2021-25989

PATIENT
  Age: 60 Year
  Sex: Male

DRUGS (5)
  1. METHYLPREDNISOLONE [Suspect]
     Active Substance: METHYLPREDNISOLONE
     Indication: Metastatic malignant melanoma
     Dosage: 1 GRAM, QD
     Route: 042
  2. DABRAFENIB [Concomitant]
     Active Substance: DABRAFENIB
     Indication: Metastatic malignant melanoma
     Dosage: 300 MILLIGRAM, QD
     Route: 048
  3. IPILIMUMAB [Concomitant]
     Active Substance: IPILIMUMAB
     Indication: Metastatic malignant melanoma
     Dosage: 3 MILLIGRAM/KILOGRAM, QD
     Route: 042
  4. NIVOLUMAB [Concomitant]
     Active Substance: NIVOLUMAB
     Indication: Metastatic malignant melanoma
     Dosage: 3 MILLIGRAM/KILOGRAM, QD
     Route: 042
  5. TRAMETINIB [Concomitant]
     Active Substance: TRAMETINIB
     Indication: Metastatic malignant melanoma
     Dosage: 2 MILLIGRAM, QD
     Route: 048

REACTIONS (2)
  - Drug ineffective for unapproved indication [Fatal]
  - Off label use [None]
